FAERS Safety Report 5413348-9 (Version None)
Quarter: 2007Q3

REPORT INFORMATION
  Report Type: 
  Country: None (occurrence: None)
  Receive Date: 20070814
  Receipt Date: 20070803
  Transmission Date: 20080115
  Serious: Yes (Death)
  Sender: FDA-Public Use
  Company Number: BE-BRISTOL-MYERS SQUIBB COMPANY-13842356

PATIENT
  Age: 60 Year
  Sex: Female

DRUGS (9)
  1. GLUCOPHAGE [Suspect]
     Indication: DIABETES MELLITUS
     Route: 048
  2. NOVONORM [Suspect]
     Indication: DIABETES MELLITUS
     Dosage: 12MG ( 2MG, 3 IN 2 D) HAS BEEN TAKEN ON 2 JUNE 2007
     Route: 048
     Dates: start: 20070612
  3. LEXOTAN [Concomitant]
     Indication: BLOOD PRESSURE
  4. BROMAZEPAM [Concomitant]
  5. TRAFLOXAL [Concomitant]
     Dates: start: 20070602
  6. GANCICLOVIR [Concomitant]
     Dates: start: 20070602
  7. ASPIRIN [Concomitant]
     Dates: start: 20070602
  8. ZOCOR [Concomitant]
     Dates: start: 20070602
  9. RAMIPRIL [Concomitant]
     Dates: start: 20070602

REACTIONS (1)
  - DEATH [None]
